FAERS Safety Report 20217373 (Version 1)
Quarter: 2021Q4

REPORT INFORMATION
  Report Type: Spontaneous
  Country: CN (occurrence: CN)
  Receive Date: 20211222
  Receipt Date: 20211222
  Transmission Date: 20220303
  Serious: Yes (Hospitalization, Other)
  Sender: FDA-Public Use
  Company Number: CN-PFIZER INC-202101771114

PATIENT
  Age: 63 Year
  Sex: Male
  Weight: 65 kg

DRUGS (2)
  1. SOLU-MEDROL [Suspect]
     Active Substance: METHYLPREDNISOLONE SODIUM SUCCINATE
     Indication: Symptomatic treatment
     Dosage: 40 MG, 1X/DAY
     Route: 042
     Dates: start: 20211122, end: 20211123
  2. MEDROL [Suspect]
     Active Substance: METHYLPREDNISOLONE
     Indication: Symptomatic treatment
     Dosage: 40 MG, 1X/DAY
     Route: 048
     Dates: start: 20211124, end: 20211202

REACTIONS (1)
  - Blood glucose increased [Recovering/Resolving]

NARRATIVE: CASE EVENT DATE: 20211202
